FAERS Safety Report 19100772 (Version 2)
Quarter: 2021Q2

REPORT INFORMATION
  Report Type: Spontaneous
  Country: US (occurrence: US)
  Receive Date: 20210407
  Receipt Date: 20210504
  Transmission Date: 20210717
  Serious: Yes (Other)
  Sender: FDA-Public Use
  Company Number: US-SA-2021SA111804

PATIENT
  Sex: Female

DRUGS (3)
  1. AUBAGIO [Suspect]
     Active Substance: TERIFLUNOMIDE
     Indication: MULTIPLE SCLEROSIS
     Dosage: 14 MG, QD
     Route: 048
     Dates: start: 20170411, end: 20210329
  2. CIAZIN [Suspect]
     Active Substance: CYAMEMAZINE
     Indication: RHEUMATOID ARTHRITIS
  3. RITUXAN [Concomitant]
     Active Substance: RITUXIMAB

REACTIONS (3)
  - Brain oedema [Not Recovered/Not Resolved]
  - Product dose omission in error [Unknown]
  - Multiple sclerosis [Not Recovered/Not Resolved]

NARRATIVE: CASE EVENT DATE: 2021
